FAERS Safety Report 13452997 (Version 8)
Quarter: 2019Q1

REPORT INFORMATION
  Report Type: Report from Study
  Country: US (occurrence: US)
  Receive Date: 20170418
  Receipt Date: 20190130
  Transmission Date: 20190417
  Serious: No
  Sender: FDA-Public Use
  Company Number: PHHY2017US057460

PATIENT
  Age: 37 Year
  Sex: Male

DRUGS (2)
  1. GILENYA [Suspect]
     Active Substance: FINGOLIMOD HYDROCHLORIDE
     Indication: MULTIPLE SCLEROSIS
     Dosage: UNK, QD
     Route: 048
  2. BACLOFEN. [Concomitant]
     Active Substance: BACLOFEN
     Indication: MUSCLE SPASTICITY
     Dosage: UNK
     Route: 065
     Dates: start: 20170803

REACTIONS (11)
  - Upper respiratory tract infection [Recovered/Resolved]
  - Hypertension [Unknown]
  - Vitamin D deficiency [Unknown]
  - Rhinalgia [Unknown]
  - Lymphocyte count decreased [Unknown]
  - Rib fracture [Unknown]
  - Fall [Recovered/Resolved]
  - Nasal discomfort [Unknown]
  - Melanocytic naevus [Unknown]
  - Anxiety [Unknown]
  - White blood cell count decreased [Unknown]

NARRATIVE: CASE EVENT DATE: 20170221
